FAERS Safety Report 4602253-3 (Version None)
Quarter: 2005Q1

REPORT INFORMATION
  Report Type: 
  Country: None (occurrence: None)
  Receive Date: 20050201
  Receipt Date: 20041013
  Transmission Date: 20050727
  Serious: Yes (Life-Threatening, Hospitalization)
  Sender: FDA-Public Use
  Company Number: 200420834BWH

PATIENT
  Age: 78 Year
  Sex: Female
  Weight: 51.2565 kg

DRUGS (10)
  1. AVELOX [Suspect]
     Indication: BRONCHITIS
     Dosage: 400 MG, QD, ORAL
     Route: 048
     Dates: start: 20040925, end: 20041001
  2. AVELOX [Suspect]
     Indication: STENOTROPHOMONAS INFECTION
     Dosage: 400 MG, QD, ORAL
     Route: 048
     Dates: start: 20040925, end: 20041001
  3. ALDACTONE [Concomitant]
  4. UNIPHYL [Concomitant]
  5. TERAZOSIN [Concomitant]
  6. DIFLUCAN [Concomitant]
  7. PROTONIX [Concomitant]
  8. VICODIN [Concomitant]
  9. ALBUTEROL [Concomitant]
  10. PULMICORT [Concomitant]

REACTIONS (3)
  - CARDIAC ARREST [None]
  - ELECTROCARDIOGRAM QT CORRECTED INTERVAL PROLONGED [None]
  - TORSADE DE POINTES [None]
